FAERS Safety Report 5801668-5 (Version None)
Quarter: 2008Q3

REPORT INFORMATION
  Report Type: 
  Country: None (occurrence: None)
  Receive Date: 20080707
  Receipt Date: 20080626
  Transmission Date: 20090109
  Serious: Yes (Hospitalization)
  Sender: FDA-Public Use
  Company Number: B0519377A

PATIENT
  Age: 27 Year
  Sex: Male

DRUGS (2)
  1. KIVEXA [Suspect]
     Indication: HIV INFECTION
     Route: 065
     Dates: start: 20070301
  2. SUSTIVA [Concomitant]
     Indication: HIV INFECTION
     Route: 065

REACTIONS (2)
  - ASTHMA [None]
  - EOSINOPHILIC PNEUMONIA [None]
